FAERS Safety Report 5450190-7 (Version None)
Quarter: 2007Q3

REPORT INFORMATION
  Report Type: 
  Country: None (occurrence: None)
  Receive Date: 20070912
  Receipt Date: 20070906
  Transmission Date: 20080115
  Serious: Yes (Death)
  Sender: FDA-Public Use
  Company Number: JP-ELI_LILLY_AND_COMPANY-JP200709001115

PATIENT
  Age: 73 Year
  Sex: Female
  Weight: 38 kg

DRUGS (1)
  1. RALOXIFENE HYDROCHLORIDE [Suspect]
     Dosage: 60 MG, DAILY (1/D)
     Route: 048
     Dates: start: 20050315, end: 20060529

REACTIONS (1)
  - CARDIAC FAILURE [None]
